FAERS Safety Report 8288677-4 (Version None)
Quarter: 2012Q2

REPORT INFORMATION
  Report Type: 
  Country: None (occurrence: None)
  Receive Date: 20120417
  Receipt Date: 20120410
  Transmission Date: 20120825
  Serious: Yes (Other)
  Sender: FDA-Public Use
  Company Number: US-AMGEN-USASP2012014636

PATIENT
  Age: 44 Year
  Sex: Female

DRUGS (1)
  1. ENBREL [Suspect]
     Indication: PSORIASIS
     Dosage: 50 MG, QWK
     Dates: start: 20021101

REACTIONS (9)
  - WEIGHT DECREASED [None]
  - INFLUENZA [None]
  - VOMITING [None]
  - NAUSEA [None]
  - INFECTION [None]
  - PAIN [None]
  - FEELING OF BODY TEMPERATURE CHANGE [None]
  - GASTROENTERITIS VIRAL [None]
  - DEHYDRATION [None]
